FAERS Safety Report 5114221-6 (Version None)
Quarter: 2006Q3

REPORT INFORMATION
  Report Type: 
  Country: None (occurrence: None)
  Receive Date: 20060925
  Receipt Date: 20060919
  Transmission Date: 20061208
  Serious: Yes (Hospitalization)
  Sender: FDA-Public Use
  Company Number: ES-ROXANE LABORATORIES, INC-2006-BP-10997RO

PATIENT
  Age: 42 Year
  Sex: Male

DRUGS (3)
  1. ZIDOVUDINE [Suspect]
     Indication: HIV INFECTION CDC CATEGORY C3
  2. LAMIVUDINE [Suspect]
     Indication: HIV INFECTION CDC CATEGORY C3
  3. INDINAVIR [Suspect]
     Indication: HIV INFECTION CDC CATEGORY C3

REACTIONS (8)
  - CSF PROTEIN INCREASED [None]
  - FATIGUE [None]
  - HEADACHE [None]
  - LIPODYSTROPHY ACQUIRED [None]
  - MENINGITIS ASEPTIC [None]
  - ORAL CANDIDIASIS [None]
  - PYREXIA [None]
  - RETROVIRAL INFECTION [None]
